FAERS Safety Report 11810931 (Version 1)
Quarter: 2015Q4

REPORT INFORMATION
  Report Type: Spontaneous
  Country: US (occurrence: None)
  Receive Date: 20151207
  Receipt Date: 20151207
  Transmission Date: 20160305
  Serious: Yes (Hospitalization)
  Sender: FDA-Public Use
  Company Number: None

PATIENT
  Age: 63 Year
  Sex: Female
  Weight: 56.4 kg

DRUGS (4)
  1. LOVASTATIN. [Concomitant]
     Active Substance: LOVASTATIN
  2. TEMOZOLOMIDE. [Suspect]
     Active Substance: TEMOZOLOMIDE
     Dates: end: 20151103
  3. LISINOPRIL. [Concomitant]
     Active Substance: LISINOPRIL
  4. SYNTHROID [Concomitant]
     Active Substance: LEVOTHYROXINE SODIUM

REACTIONS (11)
  - Constipation [None]
  - Paraesthesia [None]
  - Fatigue [None]
  - Hypoaesthesia [None]
  - Seizure [None]
  - Decreased appetite [None]
  - Headache [None]
  - Toxicity to various agents [None]
  - Alopecia [None]
  - Ageusia [None]
  - Oedema [None]

NARRATIVE: CASE EVENT DATE: 20151123
